FAERS Safety Report 5645655-9 (Version None)
Quarter: 2008Q1

REPORT INFORMATION
  Report Type: 
  Country: None (occurrence: None)
  Receive Date: 20080229
  Receipt Date: 20080220
  Transmission Date: 20080703
  Serious: Yes (Hospitalization)
  Sender: FDA-Public Use
  Company Number: US-AMGEN-US266204

PATIENT
  Sex: Male
  Weight: 72 kg

DRUGS (10)
  1. PANITUMUMAB [Suspect]
     Indication: SQUAMOUS CELL CARCINOMA
     Route: 042
     Dates: start: 20071106, end: 20071218
  2. CARBOPLATIN [Suspect]
  3. PACLITAXEL [Suspect]
  4. RADIATION THERAPY [Suspect]
  5. ATIVAN [Concomitant]
  6. COLACE [Concomitant]
  7. OXYCODONE HCL [Concomitant]
  8. PRILOSEC [Concomitant]
  9. REGLAN [Concomitant]
  10. ROBITUSSIN [Concomitant]

REACTIONS (2)
  - PLEURAL EFFUSION [None]
  - PNEUMONIA PNEUMOCOCCAL [None]
